FAERS Safety Report 14979169 (Version 1)
Quarter: 2018Q2

REPORT INFORMATION
  Report Type: Spontaneous
  Country: FR (occurrence: FR)
  Receive Date: 20180606
  Receipt Date: 20180606
  Transmission Date: 20180711
  Serious: Yes (Hospitalization)
  Sender: FDA-Public Use
  Company Number: FR-PFIZER INC-2018223891

PATIENT
  Age: 67 Year
  Sex: Female
  Weight: 60 kg

DRUGS (2)
  1. NOVATREX NOS [Suspect]
     Active Substance: AZITHROMYCIN OR METHOTREXATE SODIUM
     Indication: NEURODERMATITIS
     Dosage: 5 MG, WEEKLY
     Route: 048
     Dates: start: 201712, end: 20180423
  2. METHOTREXATE. [Suspect]
     Active Substance: METHOTREXATE
     Indication: NEURODERMATITIS
     Route: 030
     Dates: start: 201710, end: 201712

REACTIONS (2)
  - Cholestasis [Not Recovered/Not Resolved]
  - Hepatocellular injury [Not Recovered/Not Resolved]

NARRATIVE: CASE EVENT DATE: 20180410
